FAERS Safety Report 5166837-9 (Version None)
Quarter: 2006Q4

REPORT INFORMATION
  Report Type: 
  Country: None (occurrence: None)
  Receive Date: 20061204
  Receipt Date: 20061204
  Transmission Date: 20070319
  Serious: Yes (Other)
  Sender: FDA-Public Use
  Company Number: None

PATIENT
  Age: 50 Year
  Sex: Female
  Weight: 83.9154 kg

DRUGS (1)
  1. EFFEXOR XR [Suspect]
     Indication: DEPRESSION
     Dosage: 1 TABLET DAILY

REACTIONS (7)
  - ECONOMIC PROBLEM [None]
  - FEELING ABNORMAL [None]
  - STOMACH DISCOMFORT [None]
  - THIRST [None]
  - TINNITUS [None]
  - TREATMENT NONCOMPLIANCE [None]
  - VISION BLURRED [None]
